FAERS Safety Report 5200031-8 (Version None)
Quarter: 2007Q1

REPORT INFORMATION
  Report Type: 
  Country: None (occurrence: None)
  Receive Date: 20070103
  Receipt Date: 20061218
  Transmission Date: 20070707
  Serious: Yes (Other)
  Sender: FDA-Public Use
  Company Number: 8020853

PATIENT
  Age: 7 Year
  Sex: Male
  Weight: 19.1 kg

DRUGS (10)
  1. ZYRTEC [Suspect]
     Indication: ANAPHYLACTIC REACTION
     Dosage: 1.5 DF 1/D PO
     Route: 048
  2. ZYRTEC [Suspect]
     Indication: URTICARIA
     Dosage: 1.5 DF 1/D PO
     Route: 048
  3. ZYRTEC [Suspect]
     Indication: ANAPHYLACTIC REACTION
     Dosage: 2 DF 1/D PO
     Route: 048
     Dates: start: 20061203
  4. ZYRTEC [Suspect]
     Indication: URTICARIA
     Dosage: 2 DF 1/D PO
     Route: 048
     Dates: start: 20061203
  5. KEPPA [Suspect]
     Indication: FLUSHING
     Dosage: NI PO
     Route: 048
     Dates: start: 20060801
  6. KEPPA [Suspect]
     Indication: HYPERSENSITIVITY
     Dosage: NI PO
     Route: 048
     Dates: start: 20060801
  7. KEPPRA [Suspect]
     Indication: FLUSHING
     Dosage: 9 ML PO
     Route: 048
  8. KEPPRA [Suspect]
     Indication: HYPERSENSITIVITY
     Dosage: 9 ML PO
     Route: 048
  9. RANITIDINE [Concomitant]
  10. PREDNISONE [Concomitant]

REACTIONS (3)
  - ELECTROENCEPHALOGRAM ABNORMAL [None]
  - GRAND MAL CONVULSION [None]
  - PETIT MAL EPILEPSY [None]
